FAERS Safety Report 9888087 (Version 1)
Quarter: 2014Q1

REPORT INFORMATION
  Report Type: Spontaneous
  Country: US (occurrence: US)
  Receive Date: 20140211
  Receipt Date: 20140211
  Transmission Date: 20141002
  Serious: No
  Sender: FDA-Public Use
  Company Number: US-BAUSCH-BL-2013-001508

PATIENT
  Age: 66 Year
  Sex: Male

DRUGS (3)
  1. SULFACETAMIDE SODIUM OPHTHALMIC SOLUTION USP 10% [Suspect]
     Indication: CONJUNCTIVITIS
     Dosage: 2 DROPS IN EACH EYE, EVERY TWO HOURS
     Route: 047
     Dates: start: 20130304, end: 20130304
  2. SULFACETAMIDE SODIUM OPHTHALMIC SOLUTION USP 10% [Suspect]
     Dosage: 2 DROPS IN EACH EYE, EVERY THREE HOURS
     Route: 047
     Dates: start: 20130305, end: 20130307
  3. AZITHROMYCIN [Concomitant]
     Indication: BRONCHITIS

REACTIONS (1)
  - Drug ineffective [Recovered/Resolved]
